FAERS Safety Report 6992222-0 (Version None)
Quarter: 2010Q3

REPORT INFORMATION
  Report Type: 
  Country: None (occurrence: None)
  Receive Date: 20100917
  Receipt Date: 20100907
  Transmission Date: 20110219
  Serious: Yes (Hospitalization, Other)
  Sender: FDA-Public Use
  Company Number: JP-PFIZER INC-2010112971

PATIENT
  Age: 90 Year
  Sex: Female

DRUGS (4)
  1. LYRICA [Suspect]
     Indication: POST HERPETIC NEURALGIA
     Dosage: 150 MG PER DAY
     Route: 048
     Dates: start: 20100701, end: 20100723
  2. ASPIRIN [Concomitant]
     Dosage: 100 MG PER DAY
     Route: 048
  3. CRAVIT [Concomitant]
     Dosage: 250 MG PER DAY
     Route: 048
  4. LOXONIN [Concomitant]
     Dosage: 120 MG PER DAY
     Route: 048

REACTIONS (3)
  - BRAIN CONTUSION [None]
  - FALL [None]
  - LOSS OF CONSCIOUSNESS [None]
